FAERS Safety Report 20619391 (Version 1)
Quarter: 2022Q1

REPORT INFORMATION
  Report Type: Spontaneous
  Country: CN (occurrence: CN)
  Receive Date: 20220322
  Receipt Date: 20220322
  Transmission Date: 20220423
  Serious: Yes (Death, Other)
  Sender: FDA-Public Use
  Company Number: CN-SUN PHARMACEUTICAL INDUSTRIES LTD-2022R1-329877

PATIENT
  Age: 43 Year
  Sex: Female

DRUGS (6)
  1. CISPLATIN [Suspect]
     Active Substance: CISPLATIN
     Indication: Chemotherapy
     Dosage: UNK (60 MG D1-2)
     Route: 065
     Dates: start: 202011
  2. GEMCITABINE [Suspect]
     Active Substance: GEMCITABINE
     Indication: Chemotherapy
     Dosage: UNK (1.6G, D1)
     Route: 065
     Dates: start: 202011
  3. BEVACIZUMAB [Suspect]
     Active Substance: BEVACIZUMAB
     Indication: Chemotherapy
     Dosage: UNK (500 MG, D1, EVERY 3 WEEKS)
     Route: 065
     Dates: start: 202007
  4. BEVACIZUMAB [Suspect]
     Active Substance: BEVACIZUMAB
     Dosage: UNK (500 MG, D1, EVERY 3 WEEKS)
     Route: 065
     Dates: start: 202011
  5. CRIZOTINIB [Suspect]
     Active Substance: CRIZOTINIB
     Indication: Chemotherapy
     Dosage: 250 MILLIGRAM, BID
     Route: 048
     Dates: start: 202003
  6. CRIZOTINIB [Suspect]
     Active Substance: CRIZOTINIB
     Dosage: 250 MILLIGRAM, BID
     Route: 048
     Dates: start: 202011

REACTIONS (3)
  - Disease progression [Fatal]
  - Myelosuppression [Unknown]
  - Nausea [Unknown]

NARRATIVE: CASE EVENT DATE: 20210201
